FAERS Safety Report 7488727-9 (Version None)
Quarter: 2011Q2

REPORT INFORMATION
  Report Type: 
  Country: None (occurrence: None)
  Receive Date: 20110518
  Receipt Date: 20110512
  Transmission Date: 20111010
  Serious: Yes (Other)
  Sender: FDA-Public Use
  Company Number: PHHY2011IL40944

PATIENT
  Age: 57 Year
  Sex: Female

DRUGS (4)
  1. CERTICAN [Suspect]
     Indication: RENAL TRANSPLANT
     Dosage: 1.25 MG, BID
     Route: 048
  2. PREDNISONE [Concomitant]
     Dosage: 5-10MG DAILY
     Route: 048
  3. CERTICAN [Suspect]
     Indication: PROPHYLAXIS AGAINST TRANSPLANT REJECTION
  4. MYFORTIC [Concomitant]
     Dosage: 360 MG, BID
     Route: 048

REACTIONS (3)
  - BLOOD CREATININE INCREASED [None]
  - HYPOALBUMINAEMIA [None]
  - PROTEINURIA [None]
